FAERS Safety Report 10923568 (Version 2)
Quarter: 2015Q2

REPORT INFORMATION
  Report Type: Spontaneous
  Country: US (occurrence: US)
  Receive Date: 20150318
  Receipt Date: 20150526
  Transmission Date: 20150821
  Serious: No
  Sender: FDA-Public Use
  Company Number: US-JNJFOC-20130610166

PATIENT

DRUGS (1)
  1. HALOPERIDOL. [Suspect]
     Active Substance: HALOPERIDOL
     Indication: DELIRIUM
     Dosage: MEAN DOSE 4.9 MG AND 5.5 MG RESPECTIVELY
     Route: 065

REACTIONS (2)
  - Dystonia [Unknown]
  - Parkinsonism [Unknown]
